FAERS Safety Report 5490498-2 (Version None)
Quarter: 2007Q4

REPORT INFORMATION
  Report Type: 
  Country: None (occurrence: None)
  Receive Date: 20071019
  Receipt Date: 20071008
  Transmission Date: 20080405
  Serious: Yes (Hospitalization)
  Sender: FDA-Public Use
  Company Number: ES-JNJFOC-20070904157

PATIENT
  Age: 62 Year
  Sex: Male

DRUGS (8)
  1. REMICADE [Suspect]
     Route: 042
  2. REMICADE [Suspect]
     Indication: SPONDYLOARTHROPATHY
     Route: 042
  3. OMEPRAZOLE [Concomitant]
  4. ATARAX [Concomitant]
  5. URBASON [Concomitant]
  6. METHOTREXATE [Concomitant]
  7. LEDERFOLIN [Concomitant]
  8. IDEOS [Concomitant]

REACTIONS (1)
  - DISSEMINATED TUBERCULOSIS [None]
